FAERS Safety Report 23338796 (Version 1)
Quarter: 2023Q4

REPORT INFORMATION
  Report Type: Spontaneous
  Country: US (occurrence: None)
  Receive Date: 20231225
  Receipt Date: 20231225
  Transmission Date: 20240110
  Serious: Yes (Other)
  Sender: FDA-Public Use
  Company Number: None

PATIENT
  Age: 57 Year
  Sex: Female
  Weight: 50.4 kg

DRUGS (4)
  1. PAXLOVID [Suspect]
     Active Substance: NIRMATRELVIR\RITONAVIR
     Indication: COVID-19
     Dosage: OTHER QUANTITY : 10 TABLET(S);?FREQUENCY : TWICE A DAY;?
     Route: 048
     Dates: start: 20231213, end: 20231215
  2. PROBIOTICS NOS [Concomitant]
     Active Substance: PROBIOTICS NOS
  3. ACTIVATED CHARCOAL [Concomitant]
     Active Substance: ACTIVATED CHARCOAL
  4. TYLENOL [Concomitant]
     Active Substance: ACETAMINOPHEN

REACTIONS (14)
  - Diarrhoea [None]
  - Pyrexia [None]
  - Migraine [None]
  - Vomiting [None]
  - Throat irritation [None]
  - Mouth ulceration [None]
  - Lip disorder [None]
  - Toxicity to various agents [None]
  - Feeling abnormal [None]
  - Rectal haemorrhage [None]
  - Therapy change [None]
  - Therapy cessation [None]
  - Anorectal disorder [None]
  - Respiratory disorder [None]

NARRATIVE: CASE EVENT DATE: 20231213
